FAERS Safety Report 6025025-4 (Version None)
Quarter: 2008Q4

REPORT INFORMATION
  Report Type: 
  Country: None (occurrence: None)
  Receive Date: 20081224
  Receipt Date: 20081216
  Transmission Date: 20090506
  Serious: Yes (Death, Hospitalization, Other)
  Sender: FDA-Public Use
  Company Number: 2008-04161

PATIENT
  Age: 60 Year
  Sex: Female

DRUGS (3)
  1. VELCADE [Suspect]
     Indication: MULTIPLE MYELOMA
     Dosage: 1.3 MG/M2, INTRAVENOUS
     Route: 042
     Dates: start: 20081027, end: 20081027
  2. ZOLEDRONIC ACID [Concomitant]
  3. DEXAMETHASONE [Concomitant]

REACTIONS (2)
  - BACTERAEMIA [None]
  - PULMONARY EMBOLISM [None]
